FAERS Safety Report 20924305 (Version 3)
Quarter: 2022Q3

REPORT INFORMATION
  Report Type: Spontaneous
  Country: JP (occurrence: JP)
  Receive Date: 20220607
  Receipt Date: 20220810
  Transmission Date: 20221027
  Serious: Yes (Life-Threatening, Hospitalization, Other)
  Sender: FDA-Public Use
  Company Number: JP-DSJP-DSJ-2022-111666

PATIENT
  Age: 7 Decade
  Sex: Male
  Weight: 79.6 kg

DRUGS (8)
  1. ENHERTU [Suspect]
     Active Substance: FAM-TRASTUZUMAB DERUXTECAN-NXKI
     Indication: HER2 positive gastric cancer
     Dosage: 6.4 MG/KG, ONCE EVERY 3 WK
     Route: 041
     Dates: start: 20211116, end: 20211116
  2. ENHERTU [Suspect]
     Active Substance: FAM-TRASTUZUMAB DERUXTECAN-NXKI
     Dosage: 3.9 MG/KG, ONCE EVERY 3 WK
     Route: 041
     Dates: start: 20220106, end: 20220106
  3. ENHERTU [Suspect]
     Active Substance: FAM-TRASTUZUMAB DERUXTECAN-NXKI
     Dosage: 3.4 MG/KG, ONCE EVERY 3 WK
     Route: 041
     Dates: start: 20220128, end: 20220128
  4. ENHERTU [Suspect]
     Active Substance: FAM-TRASTUZUMAB DERUXTECAN-NXKI
     Dosage: 3.4 MG/KG, ONCE EVERY 3 WK
     Route: 041
     Dates: start: 20220217, end: 20220217
  5. ENHERTU [Suspect]
     Active Substance: FAM-TRASTUZUMAB DERUXTECAN-NXKI
     Dosage: 3.4 MG/KG, ONCE EVERY 3 WK
     Route: 041
     Dates: start: 20220311, end: 20220311
  6. ENHERTU [Suspect]
     Active Substance: FAM-TRASTUZUMAB DERUXTECAN-NXKI
     Dosage: 3.4 MG/KG, ONCE EVERY 3 WK
     Route: 041
     Dates: start: 20220401, end: 20220401
  7. ENHERTU [Suspect]
     Active Substance: FAM-TRASTUZUMAB DERUXTECAN-NXKI
     Dosage: 3.4 MG/KG, ONCE EVERY 3 WK
     Route: 041
     Dates: start: 20220422, end: 20220422
  8. ENHERTU [Suspect]
     Active Substance: FAM-TRASTUZUMAB DERUXTECAN-NXKI
     Dosage: 3.4 MG/KG, ONCE EVERY 3 WK
     Route: 041
     Dates: start: 20220513, end: 20220513

REACTIONS (4)
  - Septic shock [Recovered/Resolved]
  - Febrile neutropenia [Recovering/Resolving]
  - Thrombocytopenia [Recovered/Resolved]
  - Anaemia [Recovering/Resolving]

NARRATIVE: CASE EVENT DATE: 20211126
